FAERS Safety Report 9515296 (Version 1)
Quarter: 2013Q3

REPORT INFORMATION
  Report Type: Spontaneous
  Country: US (occurrence: US)
  Receive Date: 20130911
  Receipt Date: 20130911
  Transmission Date: 20140515
  Serious: Yes (Disabling)
  Sender: FDA-Public Use
  Company Number: US-JNJFOC-20130902382

PATIENT
  Sex: 0

DRUGS (1)
  1. 2-CHLORODEOXYADENOSINE [Suspect]
     Indication: LANGERHANS^ CELL HISTIOCYTOSIS
     Dosage: 5 TO 13MG/M2 FOR 3-5 CONSECUTIVE DAYS, REPEATED EVERY 2-8 WEEKS
     Route: 042

REACTIONS (2)
  - Blindness unilateral [Unknown]
  - Off label use [Unknown]
